FAERS Safety Report 6545043-7 (Version None)
Quarter: 2010Q1

REPORT INFORMATION
  Report Type: 
  Country: None (occurrence: None)
  Receive Date: 20100121
  Receipt Date: 20100114
  Transmission Date: 20100710
  Serious: Yes (Other)
  Sender: FDA-Public Use
  Company Number: B0626064A

PATIENT
  Sex: Female

DRUGS (1)
  1. NARAMIG [Suspect]
     Indication: MIGRAINE
     Dosage: 2UNIT PER DAY
     Route: 048

REACTIONS (1)
  - DRUG ABUSE [None]
